FAERS Safety Report 10451684 (Version 1)
Quarter: 2014Q3

REPORT INFORMATION
  Report Type: Spontaneous
  Country: DE (occurrence: DE)
  Receive Date: 20140915
  Receipt Date: 20140915
  Transmission Date: 20150326
  Serious: Yes (Other)
  Sender: FDA-Public Use
  Company Number: GXKR2014DE003454

PATIENT

DRUGS (6)
  1. VENLAFAXIN DURA [Suspect]
     Active Substance: VENLAFAXINE HYDROCHLORIDE
     Indication: EATING DISORDER
     Dosage: 75 [MG/D ]
     Route: 048
     Dates: start: 20130127, end: 20130921
  2. AMITRIPTYLINE [Suspect]
     Active Substance: AMITRIPTYLINE
     Indication: DEPRESSION
     Dosage: 75 [MG/D ]
     Route: 048
     Dates: start: 20130127, end: 20130921
  3. ZELDOX [Suspect]
     Active Substance: ZIPRASIDONE
     Indication: SCHIZOPHRENIA
     Dosage: 60 [MG/D ]
     Route: 048
     Dates: start: 20130127, end: 20130921
  4. DOXEPIN [Suspect]
     Active Substance: DOXEPIN
     Indication: ANXIETY DISORDER
     Dosage: 50 [MG/D ]/ UNTIL AUGUST 2013
     Route: 048
  5. VENLAFAXINE [Suspect]
     Active Substance: VENLAFAXINE HYDROCHLORIDE
     Indication: EATING DISORDER
     Dosage: 150 [MG/D ]
     Route: 048
     Dates: start: 20130127, end: 20130921
  6. AMITRIPTYLINE ^NEURAXPHARM^ [Suspect]
     Active Substance: AMITRIPTYLINE
     Indication: DEPRESSION
     Dosage: 100 [MG/D ]
     Route: 048

REACTIONS (4)
  - Maternal exposure during pregnancy [None]
  - Cervical incompetence [None]
  - Foetal monitoring abnormal [Recovered/Resolved]
  - Premature labour [None]
